FAERS Safety Report 24539392 (Version 1)
Quarter: 2024Q4

REPORT INFORMATION
  Report Type: Spontaneous
  Country: IT (occurrence: IT)
  Receive Date: 20241023
  Receipt Date: 20241023
  Transmission Date: 20250114
  Serious: Yes (Hospitalization, Other)
  Sender: SANDOZ
  Company Number: IT-MINISAL02-157842

PATIENT
  Age: 39 Year
  Sex: Female

DRUGS (5)
  1. ACECLOFENAC [Suspect]
     Active Substance: ACECLOFENAC
     Indication: Arthralgia
     Dosage: 1 DF, UNK(AS NEEDED)
     Route: 048
     Dates: start: 20110725, end: 20110809
  2. KETOPROFEN [Suspect]
     Active Substance: KETOPROFEN
     Indication: Arthralgia
     Dosage: 1 DF, UNK(AS NEEDED)
     Route: 048
     Dates: start: 20110719, end: 20110809
  3. MELOXICAM [Suspect]
     Active Substance: MELOXICAM
     Indication: Arthralgia
     Dosage: 1 DF, UNK( AS NEEDED)
     Route: 048
     Dates: start: 20110719, end: 20110809
  4. ACETAMINOPHEN [Suspect]
     Active Substance: ACETAMINOPHEN
     Indication: Arthralgia
     Dosage: 1 G, UNK(AS NEEDED)
     Route: 048
     Dates: start: 20110719, end: 20110809
  5. THIOCOLCHICOSIDE [Concomitant]
     Active Substance: THIOCOLCHICOSIDE
     Indication: Product used for unknown indication
     Dosage: UNK
     Route: 065

REACTIONS (2)
  - Haemorrhagic diathesis [Recovered/Resolved]
  - Thrombocytopenic purpura [Recovered/Resolved]

NARRATIVE: CASE EVENT DATE: 20110810
